FAERS Safety Report 8736847 (Version 5)
Quarter: 2012Q4

REPORT INFORMATION
  Report Type: 
  Country: US (occurrence: US)
  Receive Date: 20120822
  Receipt Date: 20121207
  Transmission Date: 20130627
  Serious: Yes (Hospitalization, Other)
  Sender: FDA-Public Use
  Company Number: US-ENDO PHARMACEUTICALS INC.-OPCR20121756

PATIENT
  Age: 24 Year
  Sex: Female

DRUGS (2)
  1. OPANA ER [Suspect]
     Indication: DRUG ABUSE
     Dosage: N/A
     Dates: start: 2012
  2. OPANA ER [Suspect]
     Dosage: N/A
     Dates: start: 2012, end: 2012

REACTIONS (8)
  - Thrombocytopenic purpura [Recovered/Resolved]
  - Renal failure acute [Not Recovered/Not Resolved]
  - Microangiopathic haemolytic anaemia [Recovered/Resolved]
  - Pulmonary oedema [Unknown]
  - Wrong technique in drug usage process [Recovered/Resolved]
  - Wrong technique in drug usage process [Unknown]
  - Incorrect route of drug administration [Unknown]
  - Drug abuse [Not Recovered/Not Resolved]
